FAERS Safety Report 12252970 (Version 1)
Quarter: 2016Q2

REPORT INFORMATION
  Report Type: Report from Study
  Country: US (occurrence: US)
  Receive Date: 20160411
  Receipt Date: 20160411
  Transmission Date: 20160815
  Serious: Yes (Hospitalization)
  Sender: FDA-Public Use
  Company Number: US-BIOGEN-2016BI00188992

PATIENT
  Sex: Male
  Weight: 99.88 kg

DRUGS (1)
  1. AVONEX [Suspect]
     Active Substance: INTERFERON BETA-1A
     Indication: MULTIPLE SCLEROSIS
     Route: 030
     Dates: start: 20150715

REACTIONS (6)
  - Pain in extremity [Unknown]
  - Paraesthesia [Unknown]
  - Abasia [Unknown]
  - Influenza like illness [Unknown]
  - Drug administered to patient of inappropriate age [Not Recovered/Not Resolved]
  - Musculoskeletal stiffness [Unknown]
